FAERS Safety Report 19508831 (Version 22)
Quarter: 2022Q1

REPORT INFORMATION
  Report Type: Report from Study
  Country: CH (occurrence: CH)
  Receive Date: 20210709
  Receipt Date: 20220202
  Transmission Date: 20220424
  Serious: Yes (Hospitalization, Other)
  Sender: FDA-Public Use
  Company Number: CH-ABBVIE-21K-151-3961100-00

PATIENT
  Sex: Female

DRUGS (11)
  1. CARBIDOPA\LEVODOPA [Suspect]
     Active Substance: CARBIDOPA\LEVODOPA
     Indication: Parkinson^s disease
     Dosage: MD: 7 ML, CRD: 2.0 ML/H, CRN: 0 ML/H, ED: 1 ML
     Route: 050
     Dates: start: 20210331, end: 20210603
  2. CARBIDOPA\LEVODOPA [Suspect]
     Active Substance: CARBIDOPA\LEVODOPA
     Dosage: MD: 6.5 ML, CRD: 2.4 ML/H, CRN: 0 ML/H, ED: 1 ML
     Route: 050
     Dates: start: 20210603, end: 20210605
  3. CARBIDOPA\LEVODOPA [Suspect]
     Active Substance: CARBIDOPA\LEVODOPA
     Dosage: MD: 7.0 ML, CRD: 2.4 ML/H, CRN: 0 ML/H, ED: 1 ML
     Route: 050
     Dates: start: 20210605, end: 20210607
  4. CARBIDOPA\LEVODOPA [Suspect]
     Active Substance: CARBIDOPA\LEVODOPA
     Dosage: MD: 6.5 ML, CRD: 2.4 ML/H, CRN: 0 ML/H, ED: 1 ML
     Route: 050
     Dates: start: 20210607, end: 20210622
  5. CARBIDOPA\LEVODOPA [Suspect]
     Active Substance: CARBIDOPA\LEVODOPA
     Dosage: MD: 6.5 ML, CRD: 2.0 ML/H, CRN: 0 ML/H, ED: 1 ML
     Route: 050
     Dates: start: 20210622, end: 20210624
  6. CARBIDOPA\LEVODOPA [Suspect]
     Active Substance: CARBIDOPA\LEVODOPA
     Dosage: MD: 6.5 ML, CRD: 2.2 ML/H, CRN: 0 ML/H, ED: 1 ML
     Route: 050
     Dates: start: 20210624, end: 20210705
  7. CARBIDOPA\LEVODOPA [Suspect]
     Active Substance: CARBIDOPA\LEVODOPA
     Dosage: MD: 7.0 ML, CRD: 2.4 ML/H, CRN: 0 ML/H, ED: 1 ML ; LL: 1
     Route: 050
     Dates: start: 20210705, end: 20210801
  8. CARBIDOPA\LEVODOPA [Suspect]
     Active Substance: CARBIDOPA\LEVODOPA
     Dosage: MD: 6.5 ML, CRD: 2.2 ML/H, CRN: 0 ML/H, ED: 1 ML ; LL: 1
     Route: 050
     Dates: start: 20210801, end: 20210825
  9. CARBIDOPA\LEVODOPA [Suspect]
     Active Substance: CARBIDOPA\LEVODOPA
     Dosage: MD: 6.5 ML, CRD: 2.0 ML/H, CRN: 0 ML/H, ED: 1 ML ; LL: 1
     Route: 050
     Dates: start: 20210825, end: 20210920
  10. CARBIDOPA\LEVODOPA [Suspect]
     Active Substance: CARBIDOPA\LEVODOPA
     Dosage: CRD: 1.9 ML/H, CRN: 0 ML/H, ED: 1 ML
     Route: 050
     Dates: start: 20210920, end: 20211014
  11. CARBIDOPA\LEVODOPA [Suspect]
     Active Substance: CARBIDOPA\LEVODOPA
     Dosage: MD: 7.0 ML, CRD: 1.8 ML/H, CRN: 0 ML/H, ED: 1 ML / 1 CASSETTE PER DAY
     Route: 050
     Dates: start: 20211014, end: 20211021

REACTIONS (23)
  - Wrist fracture [Unknown]
  - Urinary tract infection [Recovered/Resolved]
  - General physical health deterioration [Unknown]
  - Urinary tract infection [Recovered/Resolved]
  - Fall [Not Recovered/Not Resolved]
  - Malaise [Unknown]
  - Delirium [Recovered/Resolved]
  - Hallucination [Unknown]
  - Hallucination, visual [Recovered/Resolved]
  - Tremor [Unknown]
  - Gait disturbance [Not Recovered/Not Resolved]
  - Compulsions [Unknown]
  - Fluid intake reduced [Unknown]
  - Hypophagia [Unknown]
  - Memory impairment [Unknown]
  - Device delivery system issue [Unknown]
  - Fear [Unknown]
  - On and off phenomenon [Unknown]
  - Intentional device misuse [Unknown]
  - Emotional distress [Unknown]
  - Decreased appetite [Unknown]
  - Disorientation [Unknown]
  - Delusion [Unknown]

NARRATIVE: CASE EVENT DATE: 20210101
